FAERS Safety Report 5223429-0 (Version None)
Quarter: 2007Q1

REPORT INFORMATION
  Report Type: 
  Country: None (occurrence: None)
  Receive Date: 20070125
  Receipt Date: 20070109
  Transmission Date: 20070707
  Serious: Yes (Hospitalization)
  Sender: FDA-Public Use
  Company Number: 8020076

PATIENT
  Sex: Female

DRUGS (5)
  1. KEPPRA [Suspect]
     Dosage: 750 MG 2/D TRP
     Route: 064
     Dates: end: 20060929
  2. DEPAKINE CHRONOSPHERE [Suspect]
     Dosage: 50 MG 2/D TRP
     Route: 064
     Dates: end: 20060929
  3. TRILEPTAL [Suspect]
     Dosage: 300 MG 3/D TRP
     Route: 064
     Dates: end: 20060929
  4. FOLIC ACID [Concomitant]
  5. VITAMIN K [Concomitant]

REACTIONS (12)
  - C-REACTIVE PROTEIN INCREASED [None]
  - DRUG EXPOSURE DURING PREGNANCY [None]
  - HAEMATOCHEZIA [None]
  - LEUKOCYTOSIS [None]
  - MALAISE [None]
  - MILK ALLERGY [None]
  - NAUSEA [None]
  - NECROTISING COLITIS [None]
  - NEONATAL DISORDER [None]
  - POLYCYTHAEMIA [None]
  - POSTMATURE BABY [None]
  - VOMITING NEONATAL [None]
